FAERS Safety Report 14203675 (Version 1)
Quarter: 2017Q4

REPORT INFORMATION
  Report Type: Spontaneous
  Country: US (occurrence: None)
  Receive Date: 20171117
  Receipt Date: 20171117
  Transmission Date: 20180321
  Serious: No
  Sender: FDA-Public Use
  Company Number: None

PATIENT
  Sex: Male

DRUGS (1)
  1. DUPIXENT [Suspect]
     Active Substance: DUPILUMAB
     Dosage: FREQUENCU - AS DIRECTED
     Route: 058
     Dates: start: 20170606

REACTIONS (9)
  - Photosensitivity reaction [None]
  - Musculoskeletal pain [None]
  - Dyspnoea [None]
  - Hypersensitivity [None]
  - Skin discolouration [None]
  - Butterfly rash [None]
  - Arthralgia [None]
  - Urticaria [None]
  - Chest pain [None]
